FAERS Safety Report 7744408-5 (Version None)
Quarter: 2011Q3

REPORT INFORMATION
  Report Type: 
  Country: None (occurrence: None)
  Receive Date: 20110912
  Receipt Date: 20110901
  Transmission Date: 20111222
  Serious: Yes (Other)
  Sender: FDA-Public Use
  Company Number: PHHY2011CA78293

PATIENT
  Age: 41 Year
  Sex: Female

DRUGS (5)
  1. CLOZAPINE [Suspect]
     Indication: SCHIZOPHRENIA
     Route: 048
     Dates: start: 20020101
  2. LAMOTRIGINE [Suspect]
     Dosage: 250 MG,
  3. HALOPERIDOL DECANOATE [Concomitant]
  4. LAMOTRIGINE [Suspect]
     Dosage: 150 MG,
     Dates: start: 20070101
  5. RISPERIDONE [Concomitant]

REACTIONS (5)
  - EXTRAPYRAMIDAL DISORDER [None]
  - PSYCHIATRIC SYMPTOM [None]
  - SEDATION [None]
  - AGRANULOCYTOSIS [None]
  - NEUTROPHIL COUNT DECREASED [None]
